FAERS Safety Report 18503371 (Version 3)
Quarter: 2021Q1

REPORT INFORMATION
  Report Type: Spontaneous
  Country: US (occurrence: US)
  Receive Date: 20201113
  Receipt Date: 20210108
  Transmission Date: 20210419
  Serious: No
  Sender: FDA-Public Use
  Company Number: US-PFIZER INC-2020447468

PATIENT
  Age: 56 Year
  Sex: Female
  Weight: 89.81 kg

DRUGS (2)
  1. ALPRAZOLAM. [Suspect]
     Active Substance: ALPRAZOLAM
     Indication: ANXIETY
     Dosage: 1 MG, UNK
  2. ALPRAZOLAM. [Suspect]
     Active Substance: ALPRAZOLAM
     Indication: POST-TRAUMATIC STRESS DISORDER
     Dosage: 2 MG, AS NEEDED (ONE IN THE MORNING AND ONE IN THE EVENING, AS NEEDED)

REACTIONS (4)
  - Flashback [Unknown]
  - Drug ineffective [Unknown]
  - Delusion [Unknown]
  - Agitation [Unknown]
